FAERS Safety Report 9447373 (Version 5)
Quarter: 2014Q3

REPORT INFORMATION
  Report Type: Report from Study
  Country: JP (occurrence: JP)
  Receive Date: 20130808
  Receipt Date: 20140922
  Transmission Date: 20150326
  Serious: Yes (Hospitalization)
  Sender: FDA-Public Use
  Company Number: JP-ROCHE-1258132

PATIENT
  Age: 14 Year
  Sex: Male
  Weight: 59 kg

DRUGS (19)
  1. PREDNISOLONE. [Suspect]
     Active Substance: PREDNISOLONE
     Indication: NEPHROTIC SYNDROME
     Route: 048
  2. LONGES [Concomitant]
     Active Substance: LISINOPRIL
     Route: 065
  3. CALONAL [Concomitant]
     Active Substance: ACETAMINOPHEN
     Dosage: SINGLE
     Route: 048
     Dates: start: 20110329
  4. CALONAL [Concomitant]
     Active Substance: ACETAMINOPHEN
     Dosage: SINGLE
     Route: 048
     Dates: start: 20110412
  5. ATARAX-P [Concomitant]
     Active Substance: HYDROXYZINE HYDROCHLORIDE
     Dosage: SINGLE
     Route: 042
     Dates: start: 20110412
  6. RITUXIMAB [Suspect]
     Active Substance: RITUXIMAB
     Indication: NEPHROTIC SYNDROME
     Dosage: 400 MG/BODY.
     Route: 042
     Dates: start: 20110329
  7. MYCOPHENOLATE MOFETIL. [Suspect]
     Active Substance: MYCOPHENOLATE MOFETIL
     Indication: FOCAL SEGMENTAL GLOMERULOSCLEROSIS
  8. MEVALOTIN [Concomitant]
     Active Substance: PRAVASTATIN SODIUM
     Route: 048
  9. ATARAX-P [Concomitant]
     Active Substance: HYDROXYZINE HYDROCHLORIDE
     Dosage: SINGLE
     Route: 042
     Dates: start: 20110405
  10. BIO-THREE [Concomitant]
     Active Substance: HERBALS
     Route: 048
     Dates: start: 20120126
  11. RITUXIMAB [Suspect]
     Active Substance: RITUXIMAB
     Indication: FOCAL SEGMENTAL GLOMERULOSCLEROSIS
     Dosage: 400 MG/BODY.
     Route: 042
     Dates: start: 20110405
  12. RITUXIMAB [Suspect]
     Active Substance: RITUXIMAB
     Dosage: 400 MG/BODY.
     Route: 042
     Dates: start: 20110412
  13. ALFAROL [Suspect]
     Active Substance: ALFACALCIDOL
     Indication: FOCAL SEGMENTAL GLOMERULOSCLEROSIS
     Route: 048
  14. PREDNISOLONE. [Suspect]
     Active Substance: PREDNISOLONE
     Indication: FOCAL SEGMENTAL GLOMERULOSCLEROSIS
  15. CALONAL [Concomitant]
     Active Substance: ACETAMINOPHEN
     Dosage: SINGLE
     Route: 048
     Dates: start: 20110405
  16. ATARAX-P [Concomitant]
     Active Substance: HYDROXYZINE HYDROCHLORIDE
     Dosage: SINGLE
     Route: 042
     Dates: start: 20110329
  17. RITUXIMAB [Suspect]
     Active Substance: RITUXIMAB
     Route: 042
     Dates: start: 20120112
  18. MYCOPHENOLATE MOFETIL. [Suspect]
     Active Substance: MYCOPHENOLATE MOFETIL
     Indication: NEPHROTIC SYNDROME
     Route: 048
     Dates: start: 201003
  19. GASTER [Concomitant]
     Active Substance: FAMOTIDINE
     Route: 048

REACTIONS (4)
  - Off label use [Unknown]
  - Influenza [Recovered/Resolved]
  - Rhabdomyolysis [Recovered/Resolved]
  - Renal failure acute [Recovered/Resolved]

NARRATIVE: CASE EVENT DATE: 20120219
